FAERS Safety Report 16311825 (Version 1)
Quarter: 2019Q2

REPORT INFORMATION
  Report Type: Report from Study
  Country: None (occurrence: CA)
  Receive Date: 20190514
  Receipt Date: 20190514
  Transmission Date: 20190711
  Serious: Yes (Hospitalization, Other)
  Sender: FDA-Public Use
  Company Number: CA-ABBVIE-18K-028-2539107-00

PATIENT
  Age: 27 Year
  Sex: Female
  Weight: 90 kg

DRUGS (2)
  1. HUMIRA [Suspect]
     Active Substance: ADALIMUMAB
     Route: 058
     Dates: start: 201809
  2. HUMIRA [Suspect]
     Active Substance: ADALIMUMAB
     Indication: HIDRADENITIS
     Route: 058
     Dates: start: 20160819, end: 2018

REACTIONS (9)
  - Rash pustular [Not Recovered/Not Resolved]
  - Hidradenitis [Recovered/Resolved]
  - Hidradenitis [Not Recovered/Not Resolved]
  - Cyst [Recovered/Resolved]
  - Skin lesion [Not Recovered/Not Resolved]
  - Pain of skin [Not Recovered/Not Resolved]
  - Therapeutic response shortened [Not Recovered/Not Resolved]
  - Skin fissures [Recovered/Resolved]
  - Injection site pain [Not Recovered/Not Resolved]

NARRATIVE: CASE EVENT DATE: 201809
